FAERS Safety Report 10432657 (Version 1)
Quarter: 2014Q3

REPORT INFORMATION
  Report Type: Spontaneous
  Country: US (occurrence: US)
  Receive Date: 20140905
  Receipt Date: 20140905
  Transmission Date: 20150326
  Serious: Yes (Other)
  Sender: FDA-Public Use
  Company Number: US-AMGEN-USASP2014067146

PATIENT

DRUGS (1)
  1. PROLIA [Suspect]
     Active Substance: DENOSUMAB
     Indication: PRODUCT USED FOR UNKNOWN INDICATION
     Dosage: UNK
     Route: 065

REACTIONS (8)
  - Onychalgia [Unknown]
  - Pain in extremity [Unknown]
  - Fatigue [Unknown]
  - Varicose vein [Unknown]
  - Influenza like illness [Unknown]
  - Arthralgia [Unknown]
  - Malaise [Unknown]
  - Pruritus [Unknown]
